FAERS Safety Report 5137585-6 (Version None)
Quarter: 2006Q4

REPORT INFORMATION
  Report Type: 
  Country: None (occurrence: None)
  Receive Date: 20061030
  Receipt Date: 20051128
  Transmission Date: 20070319
  Serious: No
  Sender: FDA-Public Use
  Company Number: US-GLAXOSMITHKLINE-A0583679A

PATIENT
  Age: 66 Year
  Sex: Female

DRUGS (4)
  1. ADVAIR HFA [Suspect]
     Indication: CHRONIC OBSTRUCTIVE PULMONARY DISEASE
     Dosage: 1PUFF PER DAY
     Route: 055
     Dates: start: 20041220
  2. LIPITOR [Concomitant]
  3. EFFEXOR [Concomitant]
  4. DIOVAN [Concomitant]

REACTIONS (3)
  - ABDOMINAL DISTENSION [None]
  - DYSPHONIA [None]
  - WEIGHT INCREASED [None]
